FAERS Safety Report 4879483-9 (Version None)
Quarter: 2005Q4

REPORT INFORMATION
  Report Type: 
  Country: None (occurrence: None)
  Receive Date: 20051209
  Receipt Date: 20050929
  Transmission Date: 20060501
  Serious: Yes (Hospitalization, Other)
  Sender: FDA-Public Use
  Company Number: USA-2005-0021410

PATIENT
  Age: 18 Year
  Sex: Male

DRUGS (3)
  1. OXYCONTIN [Suspect]
  2. LORTAB [Suspect]
  3. PERCOCET [Suspect]

REACTIONS (3)
  - DRUG DEPENDENCE [None]
  - DRUG WITHDRAWAL SYNDROME [None]
  - POLYSUBSTANCE ABUSE [None]
